FAERS Safety Report 5379188-4 (Version None)
Quarter: 2007Q2

REPORT INFORMATION
  Report Type: 
  Country: None (occurrence: None)
  Receive Date: 20070530
  Receipt Date: 20070228
  Transmission Date: 20071010
  Serious: No
  Sender: FDA-Public Use
  Company Number: 2007PV030764

PATIENT
  Age: 57 Year
  Sex: Female

DRUGS (4)
  1. BYETTA [Suspect]
     Indication: DIABETES MELLITUS NON-INSULIN-DEPENDENT
     Dosage: 5 MCG; BID; SC
     Route: 058
     Dates: start: 20070220
  2. ACTOS [Concomitant]
  3. STARLIX [Concomitant]
  4. NEXIUM [Concomitant]

REACTIONS (10)
  - CHEST PAIN [None]
  - CHOKING SENSATION [None]
  - DYSPNOEA [None]
  - ERUCTATION [None]
  - HEADACHE [None]
  - MALAISE [None]
  - NAUSEA [None]
  - RHINORRHOEA [None]
  - STOMACH DISCOMFORT [None]
  - THROAT IRRITATION [None]
